FAERS Safety Report 14757237 (Version 2)
Quarter: 2018Q2

REPORT INFORMATION
  Report Type: Spontaneous
  Country: US (occurrence: US)
  Receive Date: 20180413
  Receipt Date: 20180512
  Transmission Date: 20180711
  Serious: Yes (Other)
  Sender: FDA-Public Use
  Company Number: US-SA-2018SA106918

PATIENT
  Age: 80 Year
  Sex: Male
  Weight: 94.8 kg

DRUGS (23)
  1. PREDNISONE. [Concomitant]
     Active Substance: PREDNISONE
     Route: 048
  2. SPIRONOLACTONE. [Concomitant]
     Active Substance: SPIRONOLACTONE
     Indication: PERIPHERAL SWELLING
     Route: 048
  3. ECONAZOLE NITRATE. [Concomitant]
     Active Substance: ECONAZOLE NITRATE
     Route: 061
  4. FAMOTIDINE. [Concomitant]
     Active Substance: FAMOTIDINE
     Indication: GASTROOESOPHAGEAL REFLUX DISEASE
     Route: 048
  5. ECOTRIN [Concomitant]
     Active Substance: ASPIRIN
     Route: 065
  6. EZETIMIBE. [Concomitant]
     Active Substance: EZETIMIBE
     Indication: BLOOD CHOLESTEROL
     Route: 048
  7. ISOSORBIDE DINITRATE. [Concomitant]
     Active Substance: ISOSORBIDE DINITRATE
     Indication: ANGINA PECTORIS
     Dosage: 1/2 TO ONE TABLET UP TO 3 TIMES A DAY AS NEEDED
     Route: 048
  8. ISOSORBIDE MONONITRATE. [Concomitant]
     Active Substance: ISOSORBIDE MONONITRATE
     Indication: ANGINA PECTORIS
     Route: 048
  9. MIRTAZAPINE. [Concomitant]
     Active Substance: MIRTAZAPINE
     Indication: AFFECTIVE DISORDER
     Route: 048
  10. PANTOPRAZOLE SODIUM. [Concomitant]
     Active Substance: PANTOPRAZOLE SODIUM
     Route: 065
  11. CLOPIDOGREL BISULFATE. [Concomitant]
     Active Substance: CLOPIDOGREL BISULFATE
     Indication: THROMBOSIS PROPHYLAXIS
     Route: 048
  12. MULTAQ [Concomitant]
     Active Substance: DRONEDARONE
     Indication: ARRHYTHMIA
     Route: 065
  13. VITAMIN B12 [Concomitant]
     Active Substance: CYANOCOBALAMIN
     Route: 048
  14. NITROGLYCERIN. [Concomitant]
     Active Substance: NITROGLYCERIN
     Route: 060
  15. ALIROCUMAB PREFILLED PEN [Suspect]
     Active Substance: ALIROCUMAB
     Dates: start: 2015
  16. SPIRONOLACTONE. [Concomitant]
     Active Substance: SPIRONOLACTONE
     Indication: BLOOD PRESSURE MEASUREMENT
     Route: 048
  17. FOLIC ACID. [Concomitant]
     Active Substance: FOLIC ACID
     Indication: ADVERSE DRUG REACTION
     Route: 048
  18. METHOTREXATE. [Concomitant]
     Active Substance: METHOTREXATE
  19. PRALUENT [Suspect]
     Active Substance: ALIROCUMAB
     Route: 058
     Dates: start: 2015
  20. TIMOLOL MALEATE. [Concomitant]
     Active Substance: TIMOLOL MALEATE
     Dosage: OPTHALMIC SOLUTION
     Route: 065
  21. TRIAMCINOLONE ACETONIDE. [Concomitant]
     Active Substance: TRIAMCINOLONE ACETONIDE
     Indication: PSORIASIS
     Route: 065
  22. MIRTAZAPINE. [Concomitant]
     Active Substance: MIRTAZAPINE
     Indication: SLEEP DISORDER
     Route: 048
  23. MIRTAZAPINE. [Concomitant]
     Active Substance: MIRTAZAPINE
     Indication: ASTHENIA
     Route: 048

REACTIONS (3)
  - Rheumatoid arthritis [Not Recovered/Not Resolved]
  - Inflammation [Unknown]
  - Immunology test abnormal [Unknown]
